FAERS Safety Report 15837460 (Version 1)
Quarter: 2019Q1

REPORT INFORMATION
  Report Type: Spontaneous
  Country: US (occurrence: US)
  Receive Date: 20190117
  Receipt Date: 20190117
  Transmission Date: 20190417
  Serious: No
  Sender: FDA-Public Use
  Company Number: US-BAYER-2019-007797

PATIENT
  Age: 76 Year
  Sex: Male
  Weight: 91 kg

DRUGS (3)
  1. ALEVE BACK AND MUSCLE PAIN [Suspect]
     Active Substance: NAPROXEN SODIUM
     Indication: PAIN
     Dosage: 1 DF, BID
     Route: 048
  2. EQUATE [ACETYLSALICYLIC ACID] [Concomitant]
     Indication: PROPHYLAXIS
     Dosage: UNK
     Route: 048
  3. ALEVE BACK AND MUSCLE PAIN [Suspect]
     Active Substance: NAPROXEN SODIUM
     Indication: ARTHRALGIA

REACTIONS (1)
  - Product use issue [Unknown]
